FAERS Safety Report 6423736-X (Version None)
Quarter: 2009Q4

REPORT INFORMATION
  Report Type: 
  Country: None (occurrence: None)
  Receive Date: 20091102
  Receipt Date: 20091026
  Transmission Date: 20100525
  Serious: Yes (Other)
  Sender: FDA-Public Use
  Company Number: BR-ABBOTT-09P-020-0564835-00

PATIENT
  Sex: Male
  Weight: 72 kg

DRUGS (13)
  1. HUMIRA [Suspect]
     Indication: PSORIATIC ARTHROPATHY
     Route: 058
     Dates: start: 20070501
  2. HUMIRA [Suspect]
     Route: 058
     Dates: start: 20090325, end: 20090401
  3. METHOTREXATE [Concomitant]
     Indication: PSORIATIC ARTHROPATHY
     Dates: start: 19990101, end: 20090401
  4. SIMVASTATIN [Concomitant]
     Indication: LOW DENSITY LIPOPROTEIN INCREASED
     Route: 048
  5. ISOSORBIDE MONONITRATE [Concomitant]
     Indication: CARDIAC DISORDER
     Route: 048
  6. NAPROXEN [Concomitant]
     Indication: PSORIATIC ARTHROPATHY
     Route: 048
  7. NAPROXEN [Concomitant]
     Route: 048
  8. DELCOR [Concomitant]
     Indication: CARDIAC DISORDER
     Route: 048
  9. CALTRATE 600 + D [Concomitant]
     Indication: MINERAL SUPPLEMENTATION
     Route: 048
     Dates: start: 20090701
  10. OMEPRAZOLE [Concomitant]
     Indication: PROPHYLAXIS AGAINST GASTROINTESTINAL ULCER
     Route: 058
     Dates: start: 20000101
  11. CALCORT [Concomitant]
     Indication: PAIN
     Route: 048
  12. METOPROLOL SUCCINATE [Concomitant]
     Indication: CARDIAC DISORDER
     Route: 058
     Dates: start: 20090701
  13. AAS [Concomitant]
     Indication: CARDIAC DISORDER
     Route: 048
     Dates: start: 20000101

REACTIONS (5)
  - FEMUR FRACTURE [None]
  - FOOT FRACTURE [None]
  - INSOMNIA [None]
  - ONYCHOMADESIS [None]
  - OSTEOPOROSIS [None]
